FAERS Safety Report 5914182-3 (Version None)
Quarter: 2008Q4

REPORT INFORMATION
  Report Type: 
  Country: None (occurrence: None)
  Receive Date: 20081009
  Receipt Date: 20080929
  Transmission Date: 20090506
  Serious: Yes (Hospitalization)
  Sender: FDA-Public Use
  Company Number: GB-ELI_LILLY_AND_COMPANY-GB200807000119

PATIENT
  Sex: Male
  Weight: 102 kg

DRUGS (6)
  1. ZYPREXA [Suspect]
     Indication: BIPOLAR DISORDER
     Dosage: 20 MG, UNK
     Route: 048
     Dates: start: 20080201, end: 20080601
  2. CARBAMAZEPINE [Concomitant]
     Dates: start: 20080601
  3. ZOPICLONE [Concomitant]
     Indication: INSOMNIA
     Dosage: 7.5 MG, UNK
     Route: 048
     Dates: end: 20080611
  4. DIAZEPAM [Concomitant]
     Dosage: 30 MG, UNK
     Dates: start: 20080523, end: 20080619
  5. CHLORMETHIAZOLE [Concomitant]
     Indication: INSOMNIA
     Dosage: 384 MG, UNK
     Dates: start: 20080611, end: 20080701
  6. PHENERGAN HCL [Concomitant]
     Indication: INSOMNIA
     Dosage: 25 MG, UNK
     Dates: start: 20080611, end: 20080701

REACTIONS (2)
  - ALOPECIA [None]
  - SUICIDAL IDEATION [None]
